FAERS Safety Report 5985153-6 (Version None)
Quarter: 2008Q4

REPORT INFORMATION
  Report Type: 
  Country: None (occurrence: None)
  Receive Date: 20081203
  Receipt Date: 20081121
  Transmission Date: 20090506
  Serious: Yes (Hospitalization)
  Sender: FDA-Public Use
  Company Number: 230662J08USA

PATIENT
  Age: 56 Year
  Sex: Female
  Weight: 68 kg

DRUGS (11)
  1. REBIF [Suspect]
     Indication: MULTIPLE SCLEROSIS
     Dosage: 44 MCG, 3 IN 1 WEEKS, SUBCUTANEOUS; 22 MCG, 3 IN 1 WEEKS; 44 MCG, 3 IN 1 WEEKS, SUBCUTANEOUS
     Route: 058
     Dates: start: 20051020, end: 20070930
  2. REBIF [Suspect]
     Indication: MULTIPLE SCLEROSIS
     Dosage: 44 MCG, 3 IN 1 WEEKS, SUBCUTANEOUS; 22 MCG, 3 IN 1 WEEKS; 44 MCG, 3 IN 1 WEEKS, SUBCUTANEOUS
     Route: 058
     Dates: start: 20080101
  3. POTASSIUM (POTASSIUM /00031401/) [Concomitant]
  4. BACLOFEN [Concomitant]
  5. CELEXA [Concomitant]
  6. LISINOPRIL [Concomitant]
  7. DITROPAN [Concomitant]
  8. MACRODANTIN [Concomitant]
  9. DOXAZODIN (DOXAZODIN /00639301/) [Concomitant]
  10. HYDROCHLOROTHIAZIDE [Concomitant]
  11. ATIVAN [Concomitant]

REACTIONS (6)
  - ANAEMIA [None]
  - BLOOD URINE PRESENT [None]
  - DIVERTICULUM [None]
  - GASTROENTERITIS [None]
  - HYPOTENSION [None]
  - URINE LEUKOCYTE ESTERASE POSITIVE [None]
